FAERS Safety Report 15005652 (Version 4)
Quarter: 2018Q4

REPORT INFORMATION
  Report Type: Spontaneous
  Country: DE (occurrence: DE)
  Receive Date: 20180613
  Receipt Date: 20181107
  Transmission Date: 20190204
  Serious: Yes (Hospitalization, Other)
  Sender: FDA-Public Use
  Company Number: DE-BAUSCH-BL-2018-016187

PATIENT
  Age: 68 Year
  Sex: Female
  Weight: 49 kg

DRUGS (134)
  1. FLUOROURACIL. [Suspect]
     Active Substance: FLUOROURACIL
     Route: 042
     Dates: start: 20180208, end: 20180210
  2. FLUOROURACIL. [Suspect]
     Active Substance: FLUOROURACIL
     Route: 042
     Dates: start: 20170427, end: 20170427
  3. FLUOROURACIL. [Suspect]
     Active Substance: FLUOROURACIL
     Route: 042
     Dates: start: 20171004, end: 20171006
  4. FLUOROURACIL. [Suspect]
     Active Substance: FLUOROURACIL
     Route: 042
     Dates: start: 20170302, end: 20170304
  5. FLUOROURACIL. [Suspect]
     Active Substance: FLUOROURACIL
     Route: 042
     Dates: start: 20171212, end: 20171214
  6. FLUOROURACIL. [Suspect]
     Active Substance: FLUOROURACIL
     Route: 042
     Dates: start: 20180308, end: 20180310
  7. OXALIPLATIN. [Suspect]
     Active Substance: OXALIPLATIN
     Route: 042
     Dates: start: 20170316, end: 20170316
  8. OXALIPLATIN. [Suspect]
     Active Substance: OXALIPLATIN
     Route: 042
     Dates: start: 20170613, end: 20170613
  9. OXALIPLATIN. [Suspect]
     Active Substance: OXALIPLATIN
     Route: 042
     Dates: start: 20170711, end: 20170711
  10. FOLINIC ACID [Suspect]
     Active Substance: LEUCOVORIN
     Route: 042
     Dates: start: 20170424, end: 20170424
  11. FOLINIC ACID [Suspect]
     Active Substance: LEUCOVORIN
     Route: 042
     Dates: start: 20180322, end: 20180322
  12. FOLINIC ACID [Suspect]
     Active Substance: LEUCOVORIN
     Route: 042
     Dates: start: 20170302, end: 20170302
  13. ANDECALIXIMAB [Suspect]
     Active Substance: ANDECALIXIMAB
     Route: 042
     Dates: start: 20170302, end: 20180302
  14. ANDECALIXIMAB [Suspect]
     Active Substance: ANDECALIXIMAB
     Route: 042
     Dates: start: 20170725, end: 20170725
  15. ANDECALIXIMAB [Suspect]
     Active Substance: ANDECALIXIMAB
     Route: 042
     Dates: start: 20170808, end: 20170808
  16. PANTOPRAZOLE [Concomitant]
     Active Substance: PANTOPRAZOLE
     Indication: PRODUCT USED FOR UNKNOWN INDICATION
     Route: 065
     Dates: start: 20170215
  17. ONDANSETRON [Concomitant]
     Active Substance: ONDANSETRON
     Indication: PRODUCT USED FOR UNKNOWN INDICATION
     Dates: start: 20170217
  18. FLUOROURACIL. [Suspect]
     Active Substance: FLUOROURACIL
     Route: 042
     Dates: start: 20170627, end: 20170629
  19. FLUOROURACIL. [Suspect]
     Active Substance: FLUOROURACIL
     Route: 042
     Dates: start: 20180125, end: 20180127
  20. FLUOROURACIL. [Suspect]
     Active Substance: FLUOROURACIL
     Route: 042
     Dates: start: 20170427, end: 20170429
  21. FLUOROURACIL. [Suspect]
     Active Substance: FLUOROURACIL
     Route: 042
     Dates: start: 20170530, end: 20170601
  22. FLUOROURACIL. [Suspect]
     Active Substance: FLUOROURACIL
     Route: 042
     Dates: start: 20171004, end: 20171009
  23. FLUOROURACIL. [Suspect]
     Active Substance: FLUOROURACIL
     Route: 042
     Dates: start: 20170530, end: 20170530
  24. FLUOROURACIL. [Suspect]
     Active Substance: FLUOROURACIL
     Route: 042
     Dates: start: 20180405, end: 20180405
  25. FLUOROURACIL. [Suspect]
     Active Substance: FLUOROURACIL
     Route: 042
     Dates: start: 20180222, end: 20180224
  26. FLUOROURACIL. [Suspect]
     Active Substance: FLUOROURACIL
     Route: 042
     Dates: start: 20170822, end: 20170822
  27. FLUOROURACIL. [Suspect]
     Active Substance: FLUOROURACIL
     Route: 042
     Dates: start: 20170511, end: 20170511
  28. FLUOROURACIL. [Suspect]
     Active Substance: FLUOROURACIL
     Route: 042
     Dates: start: 20170822, end: 20170824
  29. OXALIPLATIN. [Suspect]
     Active Substance: OXALIPLATIN
     Route: 042
     Dates: start: 20170413, end: 20170413
  30. OXALIPLATIN. [Suspect]
     Active Substance: OXALIPLATIN
     Route: 042
     Dates: start: 20170530, end: 20170530
  31. FOLINIC ACID [Suspect]
     Active Substance: LEUCOVORIN
     Indication: ADENOCARCINOMA GASTRIC
     Route: 042
     Dates: start: 20170413, end: 20170413
  32. FOLINIC ACID [Suspect]
     Active Substance: LEUCOVORIN
     Route: 042
     Dates: start: 20170919, end: 20170919
  33. FOLINIC ACID [Suspect]
     Active Substance: LEUCOVORIN
     Route: 042
     Dates: start: 20170316, end: 20170316
  34. FOLINIC ACID [Suspect]
     Active Substance: LEUCOVORIN
     Route: 042
     Dates: start: 20171212, end: 20171212
  35. ANDECALIXIMAB [Suspect]
     Active Substance: ANDECALIXIMAB
     Indication: ADENOCARCINOMA GASTRIC
     Route: 042
     Dates: start: 20180308, end: 20180308
  36. ANDECALIXIMAB [Suspect]
     Active Substance: ANDECALIXIMAB
     Route: 042
     Dates: start: 20170530, end: 20170530
  37. ANDECALIXIMAB [Suspect]
     Active Substance: ANDECALIXIMAB
     Route: 042
     Dates: start: 20171017, end: 20171017
  38. KREON [Concomitant]
     Active Substance: PANCRELIPASE
     Indication: PRODUCT USED FOR UNKNOWN INDICATION
     Dates: start: 20150603
  39. LAXANS AL [Concomitant]
     Indication: PRODUCT USED FOR UNKNOWN INDICATION
     Dates: start: 2007
  40. FENTANYL. [Concomitant]
     Active Substance: FENTANYL
     Indication: PRODUCT USED FOR UNKNOWN INDICATION
     Dates: start: 20170227
  41. FLUOROURACIL. [Suspect]
     Active Substance: FLUOROURACIL
     Indication: ADENOCARCINOMA GASTRIC
     Route: 042
     Dates: start: 20170919, end: 20170921
  42. FLUOROURACIL. [Suspect]
     Active Substance: FLUOROURACIL
     Route: 042
     Dates: start: 20171114, end: 20171116
  43. FLUOROURACIL. [Suspect]
     Active Substance: FLUOROURACIL
     Route: 042
     Dates: start: 20171128, end: 20171130
  44. FLUOROURACIL. [Suspect]
     Active Substance: FLUOROURACIL
     Route: 042
     Dates: start: 20170711, end: 20170713
  45. FLUOROURACIL. [Suspect]
     Active Substance: FLUOROURACIL
     Route: 042
     Dates: start: 20170302, end: 20170302
  46. FLUOROURACIL. [Suspect]
     Active Substance: FLUOROURACIL
     Route: 042
     Dates: start: 20170725, end: 20170727
  47. FLUOROURACIL. [Suspect]
     Active Substance: FLUOROURACIL
     Route: 042
     Dates: start: 20170413, end: 20170415
  48. FLUOROURACIL. [Suspect]
     Active Substance: FLUOROURACIL
     Route: 042
     Dates: start: 20170316, end: 20170318
  49. FOLINIC ACID [Suspect]
     Active Substance: LEUCOVORIN
     Route: 042
     Dates: start: 20171101, end: 20171101
  50. FOLINIC ACID [Suspect]
     Active Substance: LEUCOVORIN
     Route: 042
     Dates: start: 20180308, end: 20180308
  51. FOLINIC ACID [Suspect]
     Active Substance: LEUCOVORIN
     Route: 042
     Dates: start: 20171128, end: 20171128
  52. ANDECALIXIMAB [Suspect]
     Active Substance: ANDECALIXIMAB
     Route: 042
     Dates: start: 20170511, end: 20170511
  53. ANDECALIXIMAB [Suspect]
     Active Substance: ANDECALIXIMAB
     Route: 042
     Dates: start: 20170627, end: 20170627
  54. ANDECALIXIMAB [Suspect]
     Active Substance: ANDECALIXIMAB
     Route: 042
     Dates: start: 20180419, end: 20180419
  55. XARELTO [Concomitant]
     Active Substance: RIVAROXABAN
     Indication: PRODUCT USED FOR UNKNOWN INDICATION
     Dates: start: 20170809
  56. MAGNESIUM [Concomitant]
     Active Substance: MAGNESIUM
     Indication: PRODUCT USED FOR UNKNOWN INDICATION
     Dates: start: 19980101
  57. DICLOFENAC [Suspect]
     Active Substance: DICLOFENAC
     Indication: PRODUCT USED FOR UNKNOWN INDICATION
     Route: 065
  58. FLUOROURACIL. [Suspect]
     Active Substance: FLUOROURACIL
     Route: 042
     Dates: start: 20171017, end: 20171017
  59. FLUOROURACIL. [Suspect]
     Active Substance: FLUOROURACIL
     Route: 042
     Dates: start: 20171017, end: 20171019
  60. OXALIPLATIN. [Suspect]
     Active Substance: OXALIPLATIN
     Indication: ADENOCARCINOMA GASTRIC
     Route: 042
     Dates: start: 20170302, end: 20170302
  61. PERFALGAN [Suspect]
     Active Substance: ACETAMINOPHEN
     Indication: PRODUCT USED FOR UNKNOWN INDICATION
     Route: 065
  62. FOLINIC ACID [Suspect]
     Active Substance: LEUCOVORIN
     Route: 042
     Dates: start: 20170613, end: 20170613
  63. FOLINIC ACID [Suspect]
     Active Substance: LEUCOVORIN
     Route: 042
     Dates: start: 20171114, end: 20171114
  64. NOVAMINSULFON INJEKT [Suspect]
     Active Substance: METAMIZOLE SODIUM
     Indication: ABDOMINAL PAIN UPPER
     Route: 042
     Dates: start: 20180109
  65. CLEXANE [Suspect]
     Active Substance: ENOXAPARIN SODIUM
     Indication: PRODUCT USED FOR UNKNOWN INDICATION
     Route: 065
  66. ANDECALIXIMAB [Suspect]
     Active Substance: ANDECALIXIMAB
     Route: 042
     Dates: start: 20170330, end: 20180330
  67. ANDECALIXIMAB [Suspect]
     Active Substance: ANDECALIXIMAB
     Route: 042
     Dates: start: 20180405, end: 20180405
  68. ANDECALIXIMAB [Suspect]
     Active Substance: ANDECALIXIMAB
     Route: 042
     Dates: start: 20171114, end: 20171114
  69. ANDECALIXIMAB [Suspect]
     Active Substance: ANDECALIXIMAB
     Route: 042
     Dates: start: 20180208, end: 20180208
  70. CENTRUM A TO ZINC [Concomitant]
     Indication: PRODUCT USED FOR UNKNOWN INDICATION
     Dates: start: 20180105
  71. ADDEL N [Concomitant]
     Active Substance: UNSPECIFIED INGREDIENT
     Indication: PRODUCT USED FOR UNKNOWN INDICATION
     Dates: start: 20180406, end: 20180406
  72. FLUOROURACIL. [Suspect]
     Active Substance: FLUOROURACIL
     Route: 042
     Dates: start: 20170627, end: 20170627
  73. FLUOROURACIL. [Suspect]
     Active Substance: FLUOROURACIL
     Route: 042
     Dates: start: 20171114, end: 20171114
  74. FLUOROURACIL. [Suspect]
     Active Substance: FLUOROURACIL
     Route: 042
     Dates: start: 20171128, end: 20171128
  75. FLUOROURACIL. [Suspect]
     Active Substance: FLUOROURACIL
     Route: 042
     Dates: start: 20170613, end: 20170615
  76. FLUOROURACIL. [Suspect]
     Active Substance: FLUOROURACIL
     Route: 042
     Dates: start: 20170919, end: 20170919
  77. FLUOROURACIL. [Suspect]
     Active Substance: FLUOROURACIL
     Route: 042
     Dates: start: 20170808, end: 20170808
  78. OXALIPLATIN. [Suspect]
     Active Substance: OXALIPLATIN
     Route: 042
     Dates: start: 20170427, end: 20170427
  79. OXALIPLATIN. [Suspect]
     Active Substance: OXALIPLATIN
     Route: 042
     Dates: start: 20170511, end: 20170511
  80. FOLINIC ACID [Suspect]
     Active Substance: LEUCOVORIN
     Route: 042
     Dates: start: 20180405, end: 20180405
  81. FOLINIC ACID [Suspect]
     Active Substance: LEUCOVORIN
     Route: 042
     Dates: start: 20180222, end: 20180222
  82. ANDECALIXIMAB [Suspect]
     Active Substance: ANDECALIXIMAB
     Route: 042
     Dates: start: 20170413, end: 20170413
  83. ANDECALIXIMAB [Suspect]
     Active Substance: ANDECALIXIMAB
     Route: 042
     Dates: start: 20170919, end: 20170919
  84. ANDECALIXIMAB [Suspect]
     Active Substance: ANDECALIXIMAB
     Route: 042
     Dates: start: 20171004, end: 20171004
  85. ANDECALIXIMAB [Suspect]
     Active Substance: ANDECALIXIMAB
     Route: 042
     Dates: start: 20171101, end: 20171101
  86. ANDECALIXIMAB [Suspect]
     Active Substance: ANDECALIXIMAB
     Route: 042
     Dates: start: 20171128, end: 20171128
  87. MOVICOL [Concomitant]
     Active Substance: POLYETHYLENE GLYCOL 3350\POTASSIUM CHLORIDE\SODIUM BICARBONATE\SODIUM CHLORIDE
     Indication: PRODUCT USED FOR UNKNOWN INDICATION
     Dates: start: 2007
  88. FLUOROURACIL. [Suspect]
     Active Substance: FLUOROURACIL
     Route: 042
     Dates: start: 20171101, end: 20171101
  89. TRAMAL [Suspect]
     Active Substance: TRAMADOL
     Indication: PRODUCT USED FOR UNKNOWN INDICATION
     Route: 065
  90. FOLINIC ACID [Suspect]
     Active Substance: LEUCOVORIN
     Route: 042
     Dates: start: 20170822, end: 20170822
  91. FOLINIC ACID [Suspect]
     Active Substance: LEUCOVORIN
     Route: 042
     Dates: start: 20170511, end: 20170511
  92. FOLINIC ACID [Suspect]
     Active Substance: LEUCOVORIN
     Route: 042
     Dates: start: 20171004, end: 20171004
  93. FOLINIC ACID [Suspect]
     Active Substance: LEUCOVORIN
     Route: 042
     Dates: start: 20170530, end: 20170530
  94. FOLINIC ACID [Suspect]
     Active Substance: LEUCOVORIN
     Route: 042
     Dates: start: 20170725, end: 20170725
  95. ANDECALIXIMAB [Suspect]
     Active Substance: ANDECALIXIMAB
     Route: 042
     Dates: start: 20170427, end: 20170427
  96. ANDECALIXIMAB [Suspect]
     Active Substance: ANDECALIXIMAB
     Route: 042
     Dates: start: 20170711, end: 20170711
  97. ANDECALIXIMAB [Suspect]
     Active Substance: ANDECALIXIMAB
     Route: 042
     Dates: start: 20180125, end: 20180125
  98. NEUROTRAT B12 [Concomitant]
     Indication: PRODUCT USED FOR UNKNOWN INDICATION
     Dates: start: 20180125
  99. CERNEVIT [Concomitant]
     Active Substance: VITAMINS
     Indication: PRODUCT USED FOR UNKNOWN INDICATION
     Route: 065
     Dates: start: 20180406, end: 20180406
  100. INNOHEP [Concomitant]
     Active Substance: TINZAPARIN SODIUM
     Indication: PRODUCT USED FOR UNKNOWN INDICATION
     Dates: start: 20170424
  101. FLUOROURACIL. [Suspect]
     Active Substance: FLUOROURACIL
     Route: 042
     Dates: start: 20170302, end: 20170302
  102. FLUOROURACIL. [Suspect]
     Active Substance: FLUOROURACIL
     Route: 042
     Dates: start: 20170725, end: 20170725
  103. FLUOROURACIL. [Suspect]
     Active Substance: FLUOROURACIL
     Route: 042
     Dates: start: 20170613, end: 20170613
  104. FLUOROURACIL. [Suspect]
     Active Substance: FLUOROURACIL
     Route: 042
     Dates: start: 20170413, end: 20170413
  105. FLUOROURACIL. [Suspect]
     Active Substance: FLUOROURACIL
     Route: 042
     Dates: start: 20170808, end: 20170810
  106. FLUOROURACIL. [Suspect]
     Active Substance: FLUOROURACIL
     Route: 042
     Dates: start: 20170511, end: 20170513
  107. FOLINIC ACID [Suspect]
     Active Substance: LEUCOVORIN
     Route: 042
     Dates: start: 20170427, end: 20170427
  108. FOLINIC ACID [Suspect]
     Active Substance: LEUCOVORIN
     Route: 042
     Dates: start: 20180208, end: 20180208
  109. FOLINIC ACID [Suspect]
     Active Substance: LEUCOVORIN
     Route: 042
     Dates: start: 20170627, end: 20170627
  110. FOLINIC ACID [Suspect]
     Active Substance: LEUCOVORIN
     Route: 042
     Dates: start: 20180125, end: 20180125
  111. FOLINIC ACID [Suspect]
     Active Substance: LEUCOVORIN
     Route: 042
     Dates: start: 20170330, end: 20170330
  112. FOLINIC ACID [Suspect]
     Active Substance: LEUCOVORIN
     Route: 042
     Dates: start: 20170808, end: 20170808
  113. ANDECALIXIMAB [Suspect]
     Active Substance: ANDECALIXIMAB
     Route: 042
     Dates: start: 20170613, end: 20170613
  114. ANDECALIXIMAB [Suspect]
     Active Substance: ANDECALIXIMAB
     Route: 042
     Dates: start: 20170316, end: 20170316
  115. ANDECALIXIMAB [Suspect]
     Active Substance: ANDECALIXIMAB
     Route: 042
     Dates: start: 20170822, end: 20170822
  116. ANDECALIXIMAB [Suspect]
     Active Substance: ANDECALIXIMAB
     Route: 042
     Dates: start: 20171212, end: 20171212
  117. METOCLOPRAMID [Concomitant]
     Active Substance: METOCLOPRAMIDE
     Indication: PRODUCT USED FOR UNKNOWN INDICATION
     Dates: start: 20180110
  118. SYMBICORT [Concomitant]
     Active Substance: BUDESONIDE\FORMOTEROL FUMARATE DIHYDRATE
     Indication: PRODUCT USED FOR UNKNOWN INDICATION
     Dates: start: 20170511
  119. FLUOROURACIL. [Suspect]
     Active Substance: FLUOROURACIL
     Route: 042
     Dates: start: 20180405, end: 20180407
  120. FLUOROURACIL. [Suspect]
     Active Substance: FLUOROURACIL
     Route: 042
     Dates: start: 20180322, end: 20180324
  121. FLUOROURACIL. [Suspect]
     Active Substance: FLUOROURACIL
     Route: 042
     Dates: start: 20171101, end: 20171103
  122. FLUOROURACIL. [Suspect]
     Active Substance: FLUOROURACIL
     Route: 042
     Dates: start: 20170330, end: 20170401
  123. FLUOROURACIL. [Suspect]
     Active Substance: FLUOROURACIL
     Route: 042
     Dates: start: 20180222, end: 20180222
  124. FLUOROURACIL. [Suspect]
     Active Substance: FLUOROURACIL
     Route: 042
     Dates: start: 20170316, end: 20170316
  125. FLUOROURACIL. [Suspect]
     Active Substance: FLUOROURACIL
     Route: 042
     Dates: start: 20170330, end: 20170330
  126. FLUOROURACIL. [Suspect]
     Active Substance: FLUOROURACIL
     Route: 042
     Dates: start: 20170711, end: 20170711
  127. OXALIPLATIN. [Suspect]
     Active Substance: OXALIPLATIN
     Route: 042
     Dates: start: 20170330, end: 20170330
  128. OXALIPLATIN. [Suspect]
     Active Substance: OXALIPLATIN
     Route: 042
     Dates: start: 20170627, end: 20170627
  129. OXALIPLATIN. [Suspect]
     Active Substance: OXALIPLATIN
     Route: 042
     Dates: start: 20170725, end: 20170725
  130. FOLINIC ACID [Suspect]
     Active Substance: LEUCOVORIN
     Route: 042
     Dates: start: 20170711, end: 20170711
  131. ANDECALIXIMAB [Suspect]
     Active Substance: ANDECALIXIMAB
     Route: 042
     Dates: start: 20180322, end: 20180322
  132. RINGERS SOLUTION [Concomitant]
     Active Substance: CALCIUM CHLORIDE\POTASSIUM CHLORIDE\SODIUM CHLORIDE
     Indication: PRODUCT USED FOR UNKNOWN INDICATION
     Route: 065
     Dates: start: 20180406, end: 20180406
  133. DUROGESIC SMAT [Concomitant]
     Active Substance: FENTANYL
     Indication: PRODUCT USED FOR UNKNOWN INDICATION
     Dates: start: 20170221
  134. LYRICA [Concomitant]
     Active Substance: PREGABALIN
     Indication: PRODUCT USED FOR UNKNOWN INDICATION
     Dates: start: 20180110

REACTIONS (1)
  - Hip fracture [Recovered/Resolved]

NARRATIVE: CASE EVENT DATE: 20180506
